FAERS Safety Report 10038739 (Version 1)
Quarter: 2014Q1

REPORT INFORMATION
  Report Type: Spontaneous
  Country: US (occurrence: None)
  Receive Date: 20140306
  Receipt Date: 20140306
  Transmission Date: 20141002
  Serious: Yes (Other)
  Sender: FDA-Public Use
  Company Number: 163-21880-13070212

PATIENT
  Age: 74 Year
  Sex: Male

DRUGS (9)
  1. REVLIMID [Suspect]
     Indication: PLASMA CELL MYELOMA
     Dosage: 25 MG, 21 IN 21 D, PO?TEMPORARILY INTERRUPTED
     Route: 048
     Dates: start: 20130107
  2. ASPIRIN (ACETYLSALICYLIC ACID) [Concomitant]
  3. CIPROFLOXACIN HCL (CIPROFLOXACIN HYDROCHLORIDE) [Concomitant]
  4. DEXAMETHASONE (DEXAMETHASONE) [Concomitant]
  5. FINASTERIDE (FINASTERIDE) [Concomitant]
  6. FLUTICASONE PROPIONATE (FLUTICASONE PROPIONATE) [Concomitant]
  7. LIDOCAINE HCL (LIDOCAINE HYDROCHLORIDE) [Concomitant]
  8. OMEPRAZOLE (OMEPRAZOLE) [Concomitant]
  9. VESICARE (SOLIFENACIN SUCCINATE) [Concomitant]

REACTIONS (1)
  - Pancytopenia [None]
